FAERS Safety Report 11651764 (Version 1)
Quarter: 2015Q4

REPORT INFORMATION
  Report Type: Spontaneous
  Country: BR (occurrence: BR)
  Receive Date: 20151022
  Receipt Date: 20151022
  Transmission Date: 20160304
  Serious: Yes (Death)
  Sender: FDA-Public Use
  Company Number: BR-PFIZER INC-2015105486

PATIENT
  Age: 45 Year
  Sex: Male

DRUGS (6)
  1. ATENSINA [Concomitant]
     Active Substance: CLONIDINE
     Dosage: UNK
     Dates: start: 2014
  2. LASIX [Concomitant]
     Active Substance: FUROSEMIDE
     Dosage: 4 TABLETS, DAILY
     Dates: start: 2013
  3. CARVEDILOL. [Concomitant]
     Active Substance: CARVEDILOL
     Dosage: UNK
     Dates: start: 2014
  4. SUTENT [Suspect]
     Active Substance: SUNITINIB MALATE
     Indication: METASTATIC RENAL CELL CARCINOMA
     Dosage: 50 MG, CYCLIC (CYCLE 4 PER 2), DAILY
     Route: 048
     Dates: start: 201408, end: 201508
  5. ALDOSTERIN [Concomitant]
     Dosage: UNK
     Dates: start: 2014
  6. SIMVASTATIN. [Concomitant]
     Active Substance: SIMVASTATIN
     Dosage: UNK
     Dates: start: 2014

REACTIONS (4)
  - Respiratory failure [Fatal]
  - Multi-organ failure [Fatal]
  - Metastatic renal cell carcinoma [Fatal]
  - Disease progression [Fatal]

NARRATIVE: CASE EVENT DATE: 2015
